FAERS Safety Report 8996200 (Version 1)
Quarter: 2013Q1

REPORT INFORMATION
  Report Type: Spontaneous
  Country: US (occurrence: US)
  Receive Date: 20130103
  Receipt Date: 20130103
  Transmission Date: 20140127
  Serious: Yes (Other)
  Sender: FDA-Public Use
  Company Number: PHHY2012US120762

PATIENT
  Age: 58 Year
  Sex: Female

DRUGS (2)
  1. ACETYLSALICYLIC ACID [Suspect]
  2. GLUCOCORTICOSTEROIDS [Suspect]

REACTIONS (2)
  - Respiratory disorder [Unknown]
  - Urticaria [Unknown]
